FAERS Safety Report 23832450 (Version 1)
Quarter: 2024Q2

REPORT INFORMATION
  Report Type: Spontaneous
  Country: US (occurrence: US)
  Receive Date: 20240508
  Receipt Date: 20240508
  Transmission Date: 20240715
  Serious: No
  Sender: FDA-Public Use
  Company Number: US-SA-SAC20240426000945

PATIENT
  Age: 16 Year
  Sex: Female
  Weight: 63.9 kg

DRUGS (1)
  1. DUPIXENT [Suspect]
     Active Substance: DUPILUMAB
     Indication: Dermatitis atopic
     Dosage: 300 MG, QOW
     Route: 058

REACTIONS (5)
  - Dermatitis atopic [Recovering/Resolving]
  - Rash pruritic [Recovering/Resolving]
  - Dry skin [Recovering/Resolving]
  - Exfoliative rash [Recovering/Resolving]
  - Drug ineffective [Recovering/Resolving]
